FAERS Safety Report 4668928-5 (Version None)
Quarter: 2005Q2

REPORT INFORMATION
  Report Type: 
  Country: None (occurrence: None)
  Receive Date: 20050523
  Receipt Date: 20041004
  Transmission Date: 20051028
  Serious: Yes (Other)
  Sender: FDA-Public Use
  Company Number: PHBS2004IL13119

PATIENT
  Age: 70 Year
  Sex: Female

DRUGS (3)
  1. GLOBEN GLICOPHASE [Concomitant]
     Route: 065
  2. PREDNISONE [Concomitant]
     Route: 065
     Dates: end: 20040701
  3. ZOMETA [Suspect]
     Indication: MULTIPLE MYELOMA
     Dosage: 4 MG
     Route: 042
     Dates: start: 20030301, end: 20040901

REACTIONS (2)
  - ASEPTIC NECROSIS BONE [None]
  - TOOTH EXTRACTION [None]
